FAERS Safety Report 25220427 (Version 1)
Quarter: 2025Q2

REPORT INFORMATION
  Report Type: Spontaneous
  Country: US (occurrence: US)
  Receive Date: 20250421
  Receipt Date: 20250421
  Transmission Date: 20250717
  Serious: No
  Sender: ROCHE
  Company Number: US-ROCHE-10000260297

PATIENT
  Age: 11 Year
  Sex: Male

DRUGS (2)
  1. XOLAIR [Suspect]
     Active Substance: OMALIZUMAB
     Indication: Food allergy
     Route: 065
  2. XOLAIR [Suspect]
     Active Substance: OMALIZUMAB

REACTIONS (4)
  - Injection site erythema [Unknown]
  - Injection site swelling [Unknown]
  - Injection site warmth [Unknown]
  - Injection site pain [Unknown]
